FAERS Safety Report 5520966-6 (Version None)
Quarter: 2007Q4

REPORT INFORMATION
  Report Type: 
  Country: None (occurrence: None)
  Receive Date: 20071119
  Receipt Date: 20071108
  Transmission Date: 20080405
  Serious: Yes (Other)
  Sender: FDA-Public Use
  Company Number: CH-ROCHE-518899

PATIENT
  Age: 64 Year
  Sex: Female
  Weight: 110 kg

DRUGS (1)
  1. CELLCEPT [Suspect]
     Indication: AUTOIMMUNE HEPATITIS
     Route: 048
     Dates: start: 20070101

REACTIONS (1)
  - PAIN IN EXTREMITY [None]
